FAERS Safety Report 5590129-7 (Version None)
Quarter: 2008Q1

REPORT INFORMATION
  Report Type: 
  Country: None (occurrence: None)
  Receive Date: 20080114
  Receipt Date: 20070822
  Transmission Date: 20080703
  Serious: No
  Sender: FDA-Public Use
  Company Number: US-ABBOTT-07P-163-0378817-00

PATIENT
  Sex: Male
  Weight: 31.78 kg

DRUGS (12)
  1. OMNICEF ORAL SUSPENSION [Suspect]
     Indication: NAIL BED INFECTION
     Route: 048
     Dates: start: 20070820, end: 20070822
  2. CETIRIZINE HCL [Concomitant]
     Indication: HYPERSENSITIVITY
     Route: 048
  3. SINGULAIR [Concomitant]
     Indication: ASTHMA
     Route: 048
  4. HYDROXYZINE [Concomitant]
     Indication: ECZEMA
     Dosage: 2-3 TSP Q 8 HRS PRN
     Route: 048
     Dates: start: 20020101
  5. DESONIDE [Concomitant]
     Indication: ECZEMA
     Route: 061
     Dates: start: 19991201
  6. TRIAMCINOLONE ACETONIDE OINTMENT [Concomitant]
     Indication: ECZEMA
     Route: 061
     Dates: start: 19991201
  7. ALTABAX 1% [Concomitant]
     Indication: ECZEMA
     Route: 061
     Dates: start: 20000101
  8. MUPIROCIN 2% [Concomitant]
     Indication: ECZEMA
     Route: 061
     Dates: start: 20070601
  9. MOMETASONE FUROATE 1% [Concomitant]
     Indication: ECZEMA
     Route: 061
     Dates: start: 20000101
  10. SERETIDE [Concomitant]
     Indication: ASTHMA
     Route: 055
     Dates: start: 20060101
  11. FLUTICASONE PROPIONATE [Concomitant]
     Indication: ASTHMA
     Route: 055
     Dates: start: 20060101
  12. SALBUTAMOL SULFATE [Concomitant]
     Indication: ASTHMA
     Route: 055
     Dates: start: 19991201

REACTIONS (2)
  - RASH PAPULAR [None]
  - RASH PRURITIC [None]
